FAERS Safety Report 9193224 (Version 1)
Quarter: 2013Q1

REPORT INFORMATION
  Report Type: Spontaneous
  Country: CA (occurrence: None)
  Receive Date: 20130319
  Receipt Date: 20130319
  Transmission Date: 20140127
  Serious: Yes (Other)
  Sender: FDA-Public Use
  Company Number: AECAN201300091

PATIENT
  Age: 18 Year
  Sex: Male

DRUGS (1)
  1. GAMUNEX [Suspect]
     Indication: SEPSIS
     Route: 042
     Dates: start: 20130223, end: 20130223

REACTIONS (5)
  - Transfusion reaction [None]
  - Dyspnoea [None]
  - Hypotension [None]
  - Hypoxia [None]
  - Tachycardia [None]
